FAERS Safety Report 23658834 (Version 2)
Quarter: 2024Q2

REPORT INFORMATION
  Report Type: Spontaneous
  Country: JP (occurrence: JP)
  Receive Date: 20240321
  Receipt Date: 20240410
  Transmission Date: 20240716
  Serious: Yes (Other)
  Sender: FDA-Public Use
  Company Number: JP-MSD-M2024-08323

PATIENT
  Age: 8 Decade
  Sex: Male

DRUGS (5)
  1. KEYTRUDA [Suspect]
     Active Substance: PEMBROLIZUMAB
     Indication: Oesophageal squamous cell carcinoma stage IV
     Dosage: 200 MILLIGRAM, Q3W
     Route: 041
  2. CISPLATIN [Concomitant]
     Active Substance: CISPLATIN
     Indication: Oesophageal squamous cell carcinoma stage IV
     Dosage: 119 MILLIGRAM, QD
     Route: 041
  3. CISPLATIN [Concomitant]
     Active Substance: CISPLATIN
     Dosage: 95 MILLIGRAM, QD
     Route: 041
  4. FLUOROURACIL [Concomitant]
     Active Substance: FLUOROURACIL
     Indication: Oesophageal squamous cell carcinoma stage IV
     Dosage: 1150 MILLIGRAM, QD(5 DAYS CONTINUOUS INFUSION)
     Route: 041
  5. FLUOROURACIL [Concomitant]
     Active Substance: FLUOROURACIL
     Dosage: 1150 MILLIGRAM, QD(5 DAYS CONTINUOUS INFUSION)
     Route: 041

REACTIONS (7)
  - Hyponatraemia [Unknown]
  - Neutrophil count decreased [Unknown]
  - Anaemia [Unknown]
  - Malignant neoplasm progression [Unknown]
  - White blood cell count decreased [Unknown]
  - Blood creatinine increased [Unknown]
  - Stomatitis [Unknown]
